FAERS Safety Report 24235952 (Version 1)
Quarter: 2024Q3

REPORT INFORMATION
  Report Type: Spontaneous
  Country: US (occurrence: US)
  Receive Date: 20240822
  Receipt Date: 20240822
  Transmission Date: 20241017
  Serious: No
  Sender: ENDO
  Company Number: ENDB23-03020

PATIENT
  Sex: Male
  Weight: 104.31 kg

DRUGS (18)
  1. TESTOPEL [Suspect]
     Active Substance: TESTOSTERONE
     Indication: Hypogonadism
     Dosage: UNK UNKNOWN, UNKNOWN
     Route: 051
     Dates: start: 2010
  2. TESTOPEL [Suspect]
     Active Substance: TESTOSTERONE
     Indication: Hypogonadism
     Dosage: UNK UNKNOWN, UNKNOWN
     Route: 051
     Dates: start: 2010
  3. TESTOPEL [Suspect]
     Active Substance: TESTOSTERONE
     Indication: Hypogonadism
     Dosage: UNK UNKNOWN, UNKNOWN
     Route: 051
     Dates: start: 2010
  4. TESTOPEL [Suspect]
     Active Substance: TESTOSTERONE
     Dosage: UNK UNKNOWN, UNKNOWN (THREE YEARS AGO)
     Route: 051
     Dates: start: 2020
  5. TESTOPEL [Suspect]
     Active Substance: TESTOSTERONE
     Dosage: UNK UNKNOWN, UNKNOWN (THREE YEARS AGO)
     Route: 051
     Dates: start: 2020
  6. TESTOPEL [Suspect]
     Active Substance: TESTOSTERONE
     Dosage: UNK UNKNOWN, UNKNOWN (THREE YEARS AGO)
     Route: 051
     Dates: start: 2020
  7. TESTOPEL [Suspect]
     Active Substance: TESTOSTERONE
     Dosage: UNK UNKNOWN, UNKNOWN (EIGHT TO TEN PELLETS ON EACH SIDE)
     Route: 058
  8. TESTOPEL [Suspect]
     Active Substance: TESTOSTERONE
     Dosage: UNK UNKNOWN, UNKNOWN (EIGHT TO TEN PELLETS ON EACH SIDE)
     Route: 058
  9. TESTOPEL [Suspect]
     Active Substance: TESTOSTERONE
     Dosage: UNK UNKNOWN, UNKNOWN (EIGHT TO TEN PELLETS ON EACH SIDE)
     Route: 058
  10. TESTOPEL [Suspect]
     Active Substance: TESTOSTERONE
     Dosage: UNK UNKNOWN, UNKNOWN (SIX PELLETS)
     Route: 051
     Dates: start: 20230512
  11. TESTOPEL [Suspect]
     Active Substance: TESTOSTERONE
     Dosage: UNK UNKNOWN, UNKNOWN (SIX PELLETS)
     Route: 051
     Dates: start: 20230512
  12. TESTOPEL [Suspect]
     Active Substance: TESTOSTERONE
     Dosage: UNK UNKNOWN, UNKNOWN (SIX PELLETS)
     Route: 051
     Dates: start: 20230512
  13. TESTOPEL [Suspect]
     Active Substance: TESTOSTERONE
     Dosage: UNK UNKNOWN, UNKNOWN  (8 PELLETS EACH SIDE)
     Route: 051
     Dates: start: 20230628
  14. TESTOPEL [Suspect]
     Active Substance: TESTOSTERONE
     Dosage: UNK UNKNOWN, UNKNOWN  (8 PELLETS EACH SIDE)
     Route: 051
     Dates: start: 20230628
  15. TESTOPEL [Suspect]
     Active Substance: TESTOSTERONE
     Dosage: UNK UNKNOWN, UNKNOWN  (8 PELLETS EACH SIDE)
     Route: 051
     Dates: start: 20230628
  16. ATORVASTATIN [Concomitant]
     Active Substance: ATORVASTATIN
     Indication: Blood cholesterol abnormal
     Dosage: UNK UNKNOWN, UNKNOWN
     Route: 065
  17. RAMIPRIL [Concomitant]
     Active Substance: RAMIPRIL
     Indication: Product used for unknown indication
     Dosage: UNK UNKNOWN, UNKNOWN
     Route: 065
  18. METFORMIN [Concomitant]
     Active Substance: METFORMIN HYDROCHLORIDE
     Indication: Product used for unknown indication
     Dosage: UNK UNKNOWN, UNKNOWN
     Route: 065

REACTIONS (7)
  - Nerve injury [Not Recovered/Not Resolved]
  - Hyperreflexia [Unknown]
  - Nervous system disorder [Unknown]
  - Testicular retraction [Unknown]
  - Expulsion of medication [Recovered/Resolved]
  - Implant site pain [Not Recovered/Not Resolved]
  - Off label use [Unknown]

NARRATIVE: CASE EVENT DATE: 20230101
